FAERS Safety Report 23962302 (Version 1)
Quarter: 2024Q2

REPORT INFORMATION
  Report Type: Spontaneous
  Country: US (occurrence: None)
  Receive Date: 20240611
  Receipt Date: 20240611
  Transmission Date: 20240715
  Serious: Yes (Hospitalization)
  Sender: FDA-Public Use
  Company Number: None

PATIENT
  Sex: Male

DRUGS (2)
  1. BIKTARVY [Suspect]
     Active Substance: BICTEGRAVIR SODIUM\EMTRICITABINE\TENOFOVIR ALAFENAMIDE FUMARATE
     Indication: HIV infection
     Dosage: 50/200/25 MG ONCE DAILY PO?
     Route: 048
     Dates: start: 202301
  2. SUCRALFATE [Suspect]
     Active Substance: SUCRALFATE

REACTIONS (6)
  - Drug interaction [None]
  - Documented hypersensitivity to administered product [None]
  - Rectal haemorrhage [None]
  - Radiation injury [None]
  - Swelling [None]
  - Inflammation [None]
